FAERS Safety Report 25305278 (Version 2)
Quarter: 2025Q2

REPORT INFORMATION
  Report Type: Spontaneous
  Country: CN (occurrence: CN)
  Receive Date: 20250513
  Receipt Date: 20250520
  Transmission Date: 20250717
  Serious: Yes (Other)
  Sender: DAIICHI
  Company Number: CN-DSJP-DS-2025-139891-CN

PATIENT
  Age: 55 Year
  Sex: Female
  Weight: 61 kg

DRUGS (1)
  1. ENHERTU [Suspect]
     Active Substance: FAM-TRASTUZUMAB DERUXTECAN-NXKI
     Indication: Breast cancer
     Dosage: 360 MG, ONCE EVERY 3 WK
     Route: 041
     Dates: start: 20250404, end: 20250404

REACTIONS (5)
  - Myelosuppression [Recovering/Resolving]
  - Blood potassium decreased [Recovering/Resolving]
  - Mental disorder [Unknown]
  - Asthenia [Unknown]
  - Discomfort [Unknown]

NARRATIVE: CASE EVENT DATE: 20250425
